FAERS Safety Report 11646067 (Version 1)
Quarter: 2015Q4

REPORT INFORMATION
  Report Type: Spontaneous
  Country: US (occurrence: US)
  Receive Date: 20151020
  Receipt Date: 20151020
  Transmission Date: 20160304
  Serious: No
  Sender: FDA-Public Use
  Company Number: US-ROCHE-1621099

PATIENT
  Sex: Male

DRUGS (11)
  1. ESBRIET [Suspect]
     Active Substance: PIRFENIDONE
     Indication: PULMONARY FIBROSIS
     Dosage: 9 PILLS /DAY
     Route: 065
     Dates: start: 201411
  2. LEVORPHANOL [Concomitant]
     Active Substance: LEVORPHANOL
     Indication: BACK PAIN
     Dosage: 4 TO 6 TIMES DAILY
     Route: 065
  3. METOLAZONE. [Concomitant]
     Active Substance: METOLAZONE
     Route: 065
  4. CALCITROL [Concomitant]
     Active Substance: CALCITRIOL
     Dosage: MWF
     Route: 065
  5. LASIX [Concomitant]
     Active Substance: FUROSEMIDE
     Dosage: 1 TABLET/DOSE
     Route: 065
  6. LASIX [Concomitant]
     Active Substance: FUROSEMIDE
     Dosage: 1 TABLET/DOSE
     Route: 065
  7. POTASSIUM CHLORIDE. [Concomitant]
     Active Substance: POTASSIUM CHLORIDE
     Dosage: 8 TABLETS
     Route: 065
  8. TESTOSTERONE. [Concomitant]
     Active Substance: TESTOSTERONE
     Dosage: EVERY OTHER DAY
     Route: 065
  9. FISH OIL [Concomitant]
     Active Substance: FISH OIL
  10. DIAZEPAM. [Suspect]
     Active Substance: DIAZEPAM
     Indication: PRODUCT USED FOR UNKNOWN INDICATION
     Route: 065
  11. PHENTANYL [Concomitant]
     Active Substance: FENTANYL
     Indication: PAIN
     Dosage: EVERY HOUR, BEFORE ESBRIET
     Route: 065

REACTIONS (5)
  - Confusional state [Unknown]
  - Drug hypersensitivity [Unknown]
  - Fatigue [Not Recovered/Not Resolved]
  - Psychotic disorder [Unknown]
  - Dizziness [Not Recovered/Not Resolved]
